FAERS Safety Report 24264636 (Version 2)
Quarter: 2024Q3

REPORT INFORMATION
  Report Type: Spontaneous
  Country: JP (occurrence: JP)
  Receive Date: 20240829
  Receipt Date: 20240913
  Transmission Date: 20241016
  Serious: Yes (Other)
  Sender: FERRING
  Company Number: JP-ferring-EVA202401123FERRINGPH

PATIENT

DRUGS (2)
  1. DESMOPRESSIN ACETATE [Suspect]
     Active Substance: DESMOPRESSIN ACETATE
     Indication: Diabetes insipidus
     Dosage: 60 UG
     Dates: end: 2024
  2. NOCDURNA [Suspect]
     Active Substance: DESMOPRESSIN ACETATE
     Indication: Diabetes insipidus
     Dosage: 25 UG, DAILY
     Dates: end: 2024

REACTIONS (9)
  - Renal impairment [Not Recovered/Not Resolved]
  - Hypernatraemia [Not Recovered/Not Resolved]
  - Laboratory test abnormal [Unknown]
  - Dysphagia [Unknown]
  - Intentional product use issue [Unknown]
  - Product use in unapproved indication [Recovered/Resolved]
  - Labelled drug-disease interaction medication error [Unknown]
  - Contraindicated product administered [Unknown]
  - Product use issue [Recovered/Resolved]

NARRATIVE: CASE EVENT DATE: 20240701
